FAERS Safety Report 5726947-1 (Version None)
Quarter: 2008Q2

REPORT INFORMATION
  Report Type: 
  Country: None (occurrence: None)
  Receive Date: 20080502
  Receipt Date: 20080425
  Transmission Date: 20081010
  Serious: Yes (Hospitalization)
  Sender: FDA-Public Use
  Company Number: GB-PFIZER INC-2008037332

PATIENT
  Age: 39 Year
  Sex: Male
  Weight: 82.5 kg

DRUGS (2)
  1. SULFASALAZINE [Suspect]
     Indication: RHEUMATOID ARTHRITIS
     Dosage: DAILY DOSE:500MG
     Route: 048
     Dates: start: 20080317, end: 20080404
  2. NAPROXEN [Concomitant]
     Indication: RHEUMATOID ARTHRITIS
     Dosage: DAILY DOSE:500MG
     Route: 048
     Dates: start: 20080218, end: 20080404

REACTIONS (4)
  - BLOOD CREATININE INCREASED [None]
  - LIVER FUNCTION TEST ABNORMAL [None]
  - RASH [None]
  - WHITE BLOOD CELL COUNT INCREASED [None]
